FAERS Safety Report 8132698-9 (Version None)
Quarter: 2012Q1

REPORT INFORMATION
  Report Type: 
  Country: None (occurrence: None)
  Receive Date: 20120208
  Receipt Date: 20120124
  Transmission Date: 20120608
  Serious: Yes (Hospitalization)
  Sender: FDA-Public Use
  Company Number: JP-20120003

PATIENT
  Age: 82 Year
  Sex: Male

DRUGS (1)
  1. 10ML (LIPIODOL ULTRA FLUIDE) (ETHIODIZED OIL) [Suspect]
     Indication: THERAPEUTIC EMBOLISATION
     Dosage: (1 D)
     Route: 013
     Dates: start: 20100331, end: 20100331

REACTIONS (3)
  - OFF LABEL USE [None]
  - LIVER ABSCESS [None]
  - KLEBSIELLA TEST POSITIVE [None]
